FAERS Safety Report 16677654 (Version 2)
Quarter: 2019Q3

REPORT INFORMATION
  Report Type: Spontaneous
  Country: US (occurrence: US)
  Receive Date: 20190807
  Receipt Date: 20190828
  Transmission Date: 20191004
  Serious: Yes (Death)
  Sender: FDA-Public Use
  Company Number: US-PFIZER INC-2019334923

PATIENT
  Age: 79 Year
  Sex: Female
  Weight: 68.4 kg

DRUGS (3)
  1. MORPHINE [Concomitant]
     Active Substance: MORPHINE
     Indication: PAIN
     Dosage: UNK
     Dates: end: 20190801
  2. LYRICA [Suspect]
     Active Substance: PREGABALIN
     Indication: FIBROMYALGIA
     Dosage: 450 MG, DAILY (SHE WAS TAKING TWO 225 MG CAPSULES PER DAY, BY MOUTH, EACH DAY)
     Route: 048
     Dates: end: 201907
  3. METHADONE [Concomitant]
     Active Substance: METHADONE HYDROCHLORIDE
     Indication: PAIN
     Dosage: UNK

REACTIONS (2)
  - Parkinson^s disease [Fatal]
  - Expired product administered [Unknown]

NARRATIVE: CASE EVENT DATE: 20190801
